FAERS Safety Report 24947457 (Version 1)
Quarter: 2025Q1

REPORT INFORMATION
  Report Type: Spontaneous
  Country: US (occurrence: US)
  Receive Date: 20250210
  Receipt Date: 20250210
  Transmission Date: 20250409
  Serious: No
  Sender: Kenvue
  Company Number: US-KENVUE-20250104543

PATIENT

DRUGS (1)
  1. MENS ROGAINE EXTRA STRENGTH [Suspect]
     Active Substance: MINOXIDIL
     Indication: Alopecia
     Route: 061

REACTIONS (5)
  - Product use in unapproved indication [Unknown]
  - Product administered at inappropriate site [Unknown]
  - Dizziness [Unknown]
  - Balance disorder [Unknown]
  - Fatigue [Unknown]
